FAERS Safety Report 9266907 (Version 1)
Quarter: 2013Q2

REPORT INFORMATION
  Report Type: Report from Study
  Country: RO (occurrence: RO)
  Receive Date: 20130502
  Receipt Date: 20130502
  Transmission Date: 20140414
  Serious: Yes (Death, Hospitalization)
  Sender: FDA-Public Use
  Company Number: RO-ELI_LILLY_AND_COMPANY-10-11-00160

PATIENT
  Age: 68 Year
  Sex: Male
  Weight: 80 kg

DRUGS (10)
  1. GEMCITABINE HYDROCHLORIDE [Suspect]
     Indication: SMALL CELL LUNG CANCER
     Dosage: 2375 MG, UNK
     Dates: start: 20100519, end: 20100616
  2. CISPLATIN [Suspect]
     Indication: SMALL CELL LUNG CANCER
     Dosage: 145 MG, 3/W
     Route: 042
     Dates: start: 20100519, end: 20100609
  3. AVANDAMET [Concomitant]
     Indication: DIABETES MELLITUS
     Dosage: UNK, UNK
     Dates: start: 2006
  4. INDAPAMIDE [Concomitant]
     Indication: HYPERTENSION
     Dates: start: 200809
  5. CODEINE PHOSPHATE [Concomitant]
     Indication: COUGH
     Dates: start: 20100512
  6. ETHAMSYLATE [Concomitant]
     Indication: HAEMOPTYSIS
     Dosage: UNK, UNK
     Dates: start: 20100512, end: 20100524
  7. ADRENOSTAZIN [Concomitant]
     Indication: HAEMOPTYSIS
     Dates: start: 20100512, end: 20100521
  8. TRAMADOL [Concomitant]
     Indication: CHEST PAIN
     Dates: start: 20100512
  9. METOCLOPRAMIDE [Concomitant]
     Indication: NAUSEA
     Dates: start: 20100520, end: 20100526
  10. BISACODYL [Concomitant]
     Indication: CONSTIPATION
     Dates: start: 20100602

REACTIONS (2)
  - Atrial flutter [Recovering/Resolving]
  - Myocardial infarction [Fatal]
